FAERS Safety Report 9538217 (Version 2)
Quarter: 2013Q4

REPORT INFORMATION
  Report Type: Spontaneous
  Country: US (occurrence: US)
  Receive Date: 20130920
  Receipt Date: 20131121
  Transmission Date: 20140711
  Serious: No
  Sender: FDA-Public Use
  Company Number: US-BIOGENIDEC-2013BI091224

PATIENT
  Age: 27 Year
  Sex: Female

DRUGS (18)
  1. TYSABRI [Suspect]
     Indication: MULTIPLE SCLEROSIS
     Route: 042
     Dates: start: 201207, end: 201209
  2. TECFIDERA [Concomitant]
     Indication: MULTIPLE SCLEROSIS
     Dates: start: 201209, end: 201210
  3. AMPYRA [Concomitant]
     Indication: MULTIPLE SCLEROSIS
     Dates: start: 20120814
  4. AMPYRA [Concomitant]
     Indication: MULTIPLE SCLEROSIS
     Route: 048
     Dates: start: 20131017
  5. FAMPYRA [Concomitant]
     Route: 048
     Dates: start: 201208
  6. REBIF [Concomitant]
     Indication: MULTIPLE SCLEROSIS
     Dates: start: 2009, end: 201207
  7. COPAXONE [Concomitant]
     Indication: MULTIPLE SCLEROSIS
  8. COPAXONE [Concomitant]
     Indication: MULTIPLE SCLEROSIS
     Dates: start: 201205, end: 201305
  9. ASPIRIN [Concomitant]
     Route: 048
  10. BAYER ASPIRIN [Concomitant]
     Route: 048
  11. CELEBREX [Concomitant]
     Route: 048
  12. FEXOFENADINE [Concomitant]
     Route: 048
  13. MECLIZINE HCL [Concomitant]
     Route: 048
  14. OMEGA 3-6-9 [Concomitant]
     Route: 048
  15. POLYETHYLENE GLYCOL [Concomitant]
     Route: 048
  16. PRENATAL VITAMINS [Concomitant]
     Route: 048
  17. TRUBIOTICS [Concomitant]
  18. VITAMIN D3 [Concomitant]
     Dates: start: 20120430

REACTIONS (24)
  - Vision blurred [Unknown]
  - Eye pain [Unknown]
  - Depressed mood [Unknown]
  - Micturition urgency [Unknown]
  - Defaecation urgency [Unknown]
  - Gait disturbance [Not Recovered/Not Resolved]
  - Urinary retention [Unknown]
  - Pollakiuria [Unknown]
  - Optic neuritis [Not Recovered/Not Resolved]
  - Diplopia [Unknown]
  - Temperature intolerance [Unknown]
  - Neck pain [Unknown]
  - Back pain [Unknown]
  - Sinus disorder [Unknown]
  - Paraesthesia [Unknown]
  - Hypoaesthesia [Unknown]
  - Seasonal allergy [Unknown]
  - Insomnia [Unknown]
  - Fatigue [Unknown]
  - Asthenia [Unknown]
  - Arthralgia [Unknown]
  - Headache [Unknown]
  - Dizziness [Unknown]
  - Pruritus [Unknown]
